FAERS Safety Report 21654794 (Version 1)
Quarter: 2022Q4

REPORT INFORMATION
  Report Type: Spontaneous
  Country: US (occurrence: US)
  Receive Date: 20221129
  Receipt Date: 20221129
  Transmission Date: 20230112
  Serious: Yes (Other)
  Sender: FDA-Public Use
  Company Number: US-STRIDES ARCOLAB LIMITED-2022SP015890

PATIENT
  Age: 34 Year
  Sex: Male

DRUGS (3)
  1. CISPLATIN [Suspect]
     Active Substance: CISPLATIN
     Indication: Testicular cancer metastatic
     Dosage: UNK, FOUR CYCLES
     Route: 065
  2. ETOPOSIDE [Suspect]
     Active Substance: ETOPOSIDE
     Indication: Testicular cancer metastatic
     Dosage: UNK, FOUR CYCLES
     Route: 065
  3. BLEOMYCIN [Suspect]
     Active Substance: BLEOMYCIN SULFATE
     Indication: Testicular cancer metastatic
     Dosage: UNK, FOUR CYCLES
     Route: 065

REACTIONS (2)
  - Phrenic nerve injury [Unknown]
  - Diaphragm muscle weakness [Unknown]
